FAERS Safety Report 10065103 (Version 1)
Quarter: 2014Q1

REPORT INFORMATION
  Report Type: Spontaneous
  Country: US (occurrence: None)
  Receive Date: 20140328
  Receipt Date: 20140328
  Transmission Date: 20141002
  Serious: No
  Sender: FDA-Public Use
  Company Number: CABO-13003722

PATIENT
  Age: 45 Year
  Sex: Male

DRUGS (6)
  1. COMETRIQ [Suspect]
     Indication: RENAL CANCER
     Route: 048
     Dates: start: 20131109
  2. TOPROL (METOPROLOL SUCCINATE) [Concomitant]
  3. STOOL SOFTENER (DOCUSATE SODIUM) [Concomitant]
  4. IMODIUM (LOPERAMIDE HYDORCHLORIDE) [Concomitant]
  5. OXYCODONE (OXYCODONE HYDROCHLORIDE) (OXYCODONE) [Concomitant]
  6. MELATONIN (MELATONIN) [Concomitant]

REACTIONS (10)
  - Lactose intolerance [None]
  - Diarrhoea [None]
  - Stomatitis [None]
  - Decreased appetite [None]
  - Hypertension [None]
  - Fatigue [None]
  - Dysgeusia [None]
  - Arthralgia [None]
  - Palmar-plantar erythrodysaesthesia syndrome [None]
  - Off label use [None]
